FAERS Safety Report 8019538-3 (Version None)
Quarter: 2012Q1

REPORT INFORMATION
  Report Type: 
  Country: None (occurrence: None)
  Receive Date: 20120103
  Receipt Date: 20111219
  Transmission Date: 20120608
  Serious: Yes (Other)
  Sender: FDA-Public Use
  Company Number: GB-ARROW GEN-2011-21961

PATIENT
  Age: 18 Year
  Sex: Female

DRUGS (2)
  1. CITALOPRAM HYDROBROMIDE [Suspect]
     Indication: DEPRESSION
     Dosage: 20 MG, UNK
     Route: 048
     Dates: start: 20111124, end: 20111201
  2. CITALOPRAM HYDROBROMIDE [Suspect]
     Indication: ANXIETY

REACTIONS (7)
  - PARANOIA [None]
  - HEADACHE [None]
  - DYSARTHRIA [None]
  - ANXIETY [None]
  - MOOD SWINGS [None]
  - DRUG INEFFECTIVE [None]
  - INSOMNIA [None]
